FAERS Safety Report 14420736 (Version 1)
Quarter: 2018Q1

REPORT INFORMATION
  Report Type: Spontaneous
  Country: US (occurrence: US)
  Receive Date: 20180122
  Receipt Date: 20180122
  Transmission Date: 20180509
  Serious: No
  Sender: FDA-Public Use
  Company Number: US-ROCHE-1927603

PATIENT
  Sex: Female
  Weight: 79.45 kg

DRUGS (2)
  1. RITUXAN [Suspect]
     Active Substance: RITUXIMAB
     Indication: PRODUCT USED FOR UNKNOWN INDICATION
     Dosage: TWO DOSES 2 WEEKS APART THEN WAIT TWENTY WEEKS
     Route: 042
     Dates: start: 201701
  2. RITUXAN [Suspect]
     Active Substance: RITUXIMAB
     Dosage: 1 OF 2 DOSES THAT WILL END UP BEING 3 WEEKS APART
     Route: 042

REACTIONS (1)
  - Tooth infection [Unknown]
